FAERS Safety Report 23491993 (Version 2)
Quarter: 2024Q1

REPORT INFORMATION
  Report Type: Report from Study
  Country: FR (occurrence: FR)
  Receive Date: 20240207
  Receipt Date: 20240209
  Transmission Date: 20240410
  Serious: Yes (Death, Hospitalization, Other)
  Sender: FDA-Public Use
  Company Number: FR-CELLTRION INC.-2023FR025538

PATIENT

DRUGS (60)
  1. RITUXIMAB [Suspect]
     Active Substance: RITUXIMAB
     Indication: Diffuse large B-cell lymphoma
     Dosage: 375 MG/M2, EVERY 3 WEEKS
     Route: 042
     Dates: start: 20230816
  2. RITUXIMAB [Suspect]
     Active Substance: RITUXIMAB
     Dosage: 750 MG CYCLE 1 DAY 1, EVERY 3 WEEKS
     Route: 042
     Dates: start: 20230816
  3. CYCLOPHOSPHAMIDE [Suspect]
     Active Substance: CYCLOPHOSPHAMIDE
     Indication: Diffuse large B-cell lymphoma
     Dosage: 1500 MG CYCLE 1 DAY 1, EVERY 3 WEEKS
     Route: 042
     Dates: start: 20230816
  4. CYCLOPHOSPHAMIDE [Suspect]
     Active Substance: CYCLOPHOSPHAMIDE
     Dosage: 750 MG/M2, EVERY 3 WEEKS
     Route: 042
     Dates: start: 20230816
  5. DOXORUBICIN [Suspect]
     Active Substance: DOXORUBICIN
     Indication: Diffuse large B-cell lymphoma
     Dosage: 100 MG CYCLE 1 DAY 1, EVERY 3 WEEKS
     Route: 042
     Dates: start: 20230816
  6. DOXORUBICIN [Suspect]
     Active Substance: DOXORUBICIN
     Dosage: 50 MG/M2, EVERY 3 WEEKS
     Route: 042
     Dates: start: 20230816
  7. EPCORITAMAB [Suspect]
     Active Substance: EPCORITAMAB
     Indication: Diffuse large B-cell lymphoma
     Dosage: 0.16 MG PRIMING DOSE C1, D1, TOTAL
     Route: 058
     Dates: start: 20230816, end: 20230816
  8. EPCORITAMAB [Suspect]
     Active Substance: EPCORITAMAB
     Dosage: 0.8 MG INTERMEDIATE DOSE C1, D8, TOTAL
     Route: 058
     Dates: start: 20230823, end: 20230823
  9. PREDNISONE [Suspect]
     Active Substance: PREDNISONE
     Indication: Diffuse large B-cell lymphoma
     Dosage: 100 MG DAILY C1-6, DAY 1-5, EVERY 1 DAYS
     Route: 048
     Dates: start: 20230816
  10. VINCRISTINE [Suspect]
     Active Substance: VINCRISTINE
     Indication: Diffuse large B-cell lymphoma
     Dosage: 2 MG CYCLE 1 DAY 1, EVERY 3 WEEKS/ 1.4 MG/M2, EVERY 3 WEEKS
     Route: 042
     Dates: start: 20230816
  11. MORPHINE SULFATE [Concomitant]
     Active Substance: MORPHINE SULFATE
     Indication: Abdominal pain
     Dosage: 5 MG, AS NECESSARY
     Route: 065
     Dates: start: 20230823
  12. MORPHINE SULFATE [Concomitant]
     Active Substance: MORPHINE SULFATE
     Indication: Chest pain
  13. ALLOPURINOL SODIUM [Concomitant]
     Active Substance: ALLOPURINOL SODIUM
     Indication: Hyperuricaemia
     Dosage: 100 MG, 3/DAYS
     Route: 065
     Dates: start: 20230809, end: 20230828
  14. APIXABAN [Concomitant]
     Active Substance: APIXABAN
     Indication: Arrhythmia
     Dosage: 5 MG, 2/DAYS
     Route: 065
     Dates: end: 20230828
  15. APIXABAN [Concomitant]
     Active Substance: APIXABAN
     Dosage: 2.5 G, 2/DAYS
     Route: 065
     Dates: start: 20230906, end: 20230911
  16. ATORVASTATIN CALCIUM [Concomitant]
     Active Substance: ATORVASTATIN CALCIUM
     Indication: Dyslipidaemia
     Dosage: 10 MG, EVERY 1 DAYS
     Route: 065
     Dates: start: 20230809, end: 20230902
  17. CANDESARTAN CILEXETIL [Concomitant]
     Active Substance: CANDESARTAN CILEXETIL
     Indication: Hypertension
     Dosage: 16 MG, EVERY 1 DAYS
     Route: 065
     Dates: start: 20230824
  18. DAPTOMYCIN [Concomitant]
     Active Substance: DAPTOMYCIN
     Indication: Staphylococcal infection
     Dosage: 1000 MG, EVERY 1 DAYS
     Route: 065
     Dates: start: 20230824, end: 20230824
  19. DAPTOMYCIN [Concomitant]
     Active Substance: DAPTOMYCIN
     Indication: Febrile bone marrow aplasia
     Dosage: 1000 MG, 4/DAYS
     Route: 065
     Dates: start: 20230901
  20. POTASSIUM CHLORIDE [Concomitant]
     Active Substance: POTASSIUM CHLORIDE
     Indication: Hypokalaemia
     Dosage: 600 MG
     Route: 065
     Dates: start: 20230906
  21. POTASSIUM CHLORIDE [Concomitant]
     Active Substance: POTASSIUM CHLORIDE
     Dosage: 600 MG, 6/DAYS/ 600 MG INTERMITTENT, 6/DAYS
     Route: 065
     Dates: start: 20230828, end: 20230829
  22. FUROSEMIDE [Concomitant]
     Active Substance: FUROSEMIDE
     Indication: Acute kidney injury
     Dosage: 40 MG, EVERY 1 DAYS
     Route: 065
     Dates: start: 20230905, end: 20230906
  23. FUROSEMIDE [Concomitant]
     Active Substance: FUROSEMIDE
     Indication: Sodium retention
     Dosage: 20 MG, EVERY 1 DAYS
     Route: 065
     Dates: start: 20230828, end: 20230829
  24. FUROSEMIDE [Concomitant]
     Active Substance: FUROSEMIDE
     Dosage: 125 MG, EVERY 1 DAYS
     Route: 065
     Dates: start: 20230908
  25. HYDROCHLOROTHIAZIDE [Concomitant]
     Active Substance: HYDROCHLOROTHIAZIDE
     Indication: Hypertension
     Dosage: 12.5 MG, EVERY 1 DAYS
     Route: 065
     Dates: end: 20230924
  26. IRON [IRON DEXTRAN] [Concomitant]
     Indication: Anaemia prophylaxis
     Dosage: 66 MG, 2/DAYS
     Route: 065
     Dates: start: 20230809, end: 20230829
  27. LIDOCAINE HYDROCHLORIDE [Concomitant]
     Active Substance: LIDOCAINE HYDROCHLORIDE
     Indication: Back pain
     Dosage: 5 % INTERMITTENT, EVERY 1 DAYS
     Route: 065
     Dates: start: 20230810, end: 20230813
  28. LIDOCAINE HYDROCHLORIDE [Concomitant]
     Active Substance: LIDOCAINE HYDROCHLORIDE
     Dosage: 5 %, EVERY 1 DAYS
     Route: 065
     Dates: start: 20230817
  29. LIDOCAINE HYDROCHLORIDE [Concomitant]
     Active Substance: LIDOCAINE HYDROCHLORIDE
     Dosage: 5 % INTERMITTENT, EVERY 1 DAYS
     Route: 065
     Dates: start: 20230810, end: 20230906
  30. POLYETHYLENE GLYCOLS [Concomitant]
     Active Substance: POLYETHYLENE GLYCOLS
     Indication: Constipation prophylaxis
     Dosage: 10 G, 3/DAYS
     Route: 065
     Dates: start: 20230814, end: 20230907
  31. POLYETHYLENE GLYCOLS [Concomitant]
     Active Substance: POLYETHYLENE GLYCOLS
     Indication: Constipation
  32. NEBIVOLOL [Concomitant]
     Active Substance: NEBIVOLOL
     Indication: Hypertension
     Dosage: 2.5 MG, EVERY 1 DAYS
     Route: 065
     Dates: end: 20230828
  33. NEFOPAM HYDROCHLORIDE [Concomitant]
     Active Substance: NEFOPAM HYDROCHLORIDE
     Indication: Abdominal pain
     Dosage: 20 MG, AS NECESSARY
     Route: 065
     Dates: start: 20230812
  34. NEFOPAM HYDROCHLORIDE [Concomitant]
     Active Substance: NEFOPAM HYDROCHLORIDE
     Indication: Chest pain
     Dosage: 20 MG OCCASIONAL, AS NECESSARY
     Route: 065
     Dates: start: 20230812
  35. PANTOPRAZOLE SODIUM [Concomitant]
     Active Substance: PANTOPRAZOLE SODIUM
     Indication: Prophylaxis against gastrointestinal ulcer
     Dosage: 20 MG, EVERY 1 DAYS
     Route: 065
     Dates: start: 20230914
  36. PANTOPRAZOLE SODIUM [Concomitant]
     Active Substance: PANTOPRAZOLE SODIUM
     Dosage: 20 MG, EVERY 1 DAYS
     Route: 065
     Dates: start: 20230809
  37. PHOSPHORUS [Concomitant]
     Active Substance: PHOSPHORUS
     Indication: Hypophosphataemia
     Dosage: 30 DROP, 3/DAYS
     Route: 065
     Dates: start: 20230818, end: 20230830
  38. RILMENIDINE [Concomitant]
     Active Substance: RILMENIDINE
     Indication: Hypertension
     Dosage: 1 MG, EVERY 1 DAYS
     Route: 065
     Dates: end: 20230828
  39. SKENAN [Concomitant]
     Active Substance: MORPHINE SULFATE
     Indication: Abdominal pain
     Dosage: 60 MG, EVERY 1 DAYS
     Route: 065
     Dates: start: 20230823
  40. SKENAN [Concomitant]
     Active Substance: MORPHINE SULFATE
     Indication: Chest pain
  41. TRAMADOL HYDROCHLORIDE [Concomitant]
     Active Substance: TRAMADOL HYDROCHLORIDE
     Indication: Abdominal pain
     Dosage: 100 MG, EVERY 1 DAYS
     Route: 065
     Dates: start: 20230814, end: 20230823
  42. TRAMADOL HYDROCHLORIDE [Concomitant]
     Active Substance: TRAMADOL HYDROCHLORIDE
     Indication: Chest pain
     Dosage: 150 MG, EVERY 1 DAYS
     Route: 065
     Dates: start: 20230809, end: 20230814
  43. VALACYCLOVIR HYDROCHLORIDE [Concomitant]
     Active Substance: VALACYCLOVIR HYDROCHLORIDE
     Indication: Infection prophylaxis
     Dosage: 500 MG, EVERY 1 DAYS
     Route: 065
     Dates: start: 20230831, end: 20230902
  44. VALACYCLOVIR HYDROCHLORIDE [Concomitant]
     Active Substance: VALACYCLOVIR HYDROCHLORIDE
     Indication: Antiviral prophylaxis
  45. ZOPICLONE [Concomitant]
     Active Substance: ZOPICLONE
     Indication: Sleep disorder
     Dosage: 3.75 MG, EVERY 1 DAYS
     Route: 065
     Dates: start: 20230829
  46. ZOPICLONE [Concomitant]
     Active Substance: ZOPICLONE
     Dosage: 3.75 MG, EVERY 1 DAYS
     Route: 065
     Dates: start: 20230827
  47. KARDEGIC [Concomitant]
     Active Substance: ASPIRIN DL-LYSINE
     Indication: Peripheral artery angioplasty
     Dosage: 75 MG, 2/DAYS
     Route: 065
     Dates: start: 20230810
  48. TERBUTALINE [Concomitant]
     Active Substance: TERBUTALINE
     Indication: Hypoxia
     Dosage: 5 MG, TOTAL
     Route: 065
     Dates: start: 20230824, end: 20230824
  49. CLOXACILLIN [Concomitant]
     Active Substance: CLOXACILLIN
     Indication: Febrile bone marrow aplasia
     Dosage: UNK, Q4HR
     Route: 065
     Dates: start: 20230825, end: 20230828
  50. AMITRIPTYLINE HYDROCHLORIDE [Concomitant]
     Active Substance: AMITRIPTYLINE HYDROCHLORIDE
     Indication: Insomnia
     Dosage: 5 DROPS
     Route: 065
     Dates: start: 20230809, end: 20230814
  51. TAZOBACTAM [Concomitant]
     Active Substance: TAZOBACTAM
     Indication: Febrile bone marrow aplasia
     Dosage: UNK
     Route: 065
     Dates: start: 20230824, end: 20230825
  52. DEXAMETHASONE [Concomitant]
     Active Substance: DEXAMETHASONE
     Indication: Wheezing
     Dosage: 40 MG, TOTAL
     Route: 065
     Dates: start: 20230824, end: 20230824
  53. DEXAMETHASONE [Concomitant]
     Active Substance: DEXAMETHASONE
     Indication: Chills
  54. AMIODARONE [Concomitant]
     Active Substance: AMIODARONE
     Indication: Arrhythmia
     Dosage: 200 MG
     Route: 065
     Dates: start: 20230810
  55. AMIKACIN [Concomitant]
     Active Substance: AMIKACIN
     Indication: Febrile bone marrow aplasia
     Dosage: 3000 MG, TOTAL
     Route: 065
     Dates: start: 20230824, end: 20230824
  56. FILGRASTIM [Concomitant]
     Active Substance: FILGRASTIM
     Indication: Aplasia
     Dosage: UNK
     Route: 065
     Dates: start: 20230821
  57. METHYLPREDNISOLONE [Concomitant]
     Active Substance: METHYLPREDNISOLONE
     Indication: Product used for unknown indication
     Dosage: 100 MG, EVERY 1 DAYS
     Route: 065
     Dates: start: 20230809, end: 20230813
  58. METHYLPREDNISOLONE [Concomitant]
     Active Substance: METHYLPREDNISOLONE
     Dosage: 100 MG
     Route: 065
     Dates: end: 20230813
  59. PIPERACILLIN [Concomitant]
     Active Substance: PIPERACILLIN
     Indication: Febrile bone marrow aplasia
     Dosage: 4 G, EVERY 6 HOURS
     Route: 065
     Dates: start: 20230824, end: 20230825
  60. GABAPENTIN [Concomitant]
     Active Substance: GABAPENTIN
     Dosage: 100 MG, 3/DAYS
     Route: 065
     Dates: start: 20230823

REACTIONS (8)
  - Enterobacter pneumonia [Fatal]
  - Pneumonia [Fatal]
  - Cytokine release syndrome [Not Recovered/Not Resolved]
  - Escherichia infection [Not Recovered/Not Resolved]
  - Staphylococcal infection [Recovered/Resolved]
  - Enterobacter pneumonia [Not Recovered/Not Resolved]
  - Acute kidney injury [Not Recovered/Not Resolved]
  - Product use issue [Unknown]

NARRATIVE: CASE EVENT DATE: 20230824
